FAERS Safety Report 6003260-9 (Version None)
Quarter: 2008Q4

REPORT INFORMATION
  Report Type: 
  Country: None (occurrence: None)
  Receive Date: 20081212
  Receipt Date: 20081212
  Transmission Date: 20090506
  Serious: No
  Sender: FDA-Public Use
  Company Number: None

PATIENT
  Sex: Female
  Weight: 92.5338 kg

DRUGS (5)
  1. ENBREL [Suspect]
     Indication: RHEUMATOID ARTHRITIS
     Dosage: ENBREL QW SQ
     Route: 058
     Dates: start: 20080304, end: 20081215
  2. METHOTREXATE [Concomitant]
  3. PLAQUENIL [Concomitant]
  4. MOBIC [Concomitant]
  5. IRON SUPPLEMENTS [Concomitant]

REACTIONS (3)
  - CONDITION AGGRAVATED [None]
  - HYPERSENSITIVITY [None]
  - URTICARIA [None]
